FAERS Safety Report 6547907-7 (Version None)
Quarter: 2010Q1

REPORT INFORMATION
  Report Type: 
  Country: None (occurrence: None)
  Receive Date: 20100124
  Receipt Date: 20091119
  Transmission Date: 20100710
  Serious: No
  Sender: FDA-Public Use
  Company Number: US-ALEXION-A200901000

PATIENT
  Sex: Male

DRUGS (4)
  1. SOLIRIS [Suspect]
     Indication: PAROXYSMAL NOCTURNAL HAEMOGLOBINURIA
     Dosage: 600 MG, QW X4
     Route: 042
     Dates: start: 20081023, end: 20081101
  2. SOLIRIS [Suspect]
     Dosage: 900 MG, Q2 WEEKS
     Route: 042
     Dates: start: 20080101
  3. FOLIC ACID [Concomitant]
     Dosage: ONCE DAILY
     Route: 048
  4. PREDNISONE [Concomitant]
     Dosage: ONCE DAILY
     Route: 048

REACTIONS (2)
  - CHOLELITHIASIS [None]
  - CHROMATURIA [None]
